FAERS Safety Report 7046241-9 (Version None)
Quarter: 2010Q4

REPORT INFORMATION
  Report Type: 
  Country: None (occurrence: None)
  Receive Date: 20101014
  Receipt Date: 20101008
  Transmission Date: 20110411
  Serious: Yes (Hospitalization)
  Sender: FDA-Public Use
  Company Number: A0881465A

PATIENT
  Age: 55 Year
  Sex: Male

DRUGS (1)
  1. COREG [Suspect]
     Dosage: 6.25MG TWICE PER DAY
     Route: 048
     Dates: start: 20091016

REACTIONS (3)
  - CARDIAC DISORDER [None]
  - CARDIAC OPERATION [None]
  - CORONARY ARTERIAL STENT INSERTION [None]
